FAERS Safety Report 8547892-2 (Version None)
Quarter: 2012Q3

REPORT INFORMATION
  Report Type: 
  Country: None (occurrence: None)
  Receive Date: 20120728
  Receipt Date: 20120712
  Transmission Date: 20120928
  Serious: Yes (Other)
  Sender: FDA-Public Use
  Company Number: US-009507513-2012SP021647

PATIENT

DRUGS (5)
  1. VICTRELIS [Suspect]
     Indication: HEPATITIS C
     Dosage: UNK UNK, UNKNOWN
     Dates: start: 20120221, end: 20120526
  2. LEXAPRO [Concomitant]
     Indication: PRODUCT USED FOR UNKNOWN INDICATION
     Dosage: UNK UNK, UNKNOWN
     Route: 065
  3. PEG-INTRON [Suspect]
     Indication: HEPATITIS C
     Dosage: UNK UNK, UNKNOWN
     Dates: start: 20120124, end: 20120526
  4. REBETOL [Suspect]
     Indication: HEPATITIS C
     Dosage: UNK UNK, UNKNOWN
     Dates: start: 20120124, end: 20120526
  5. PROZAC [Concomitant]
     Indication: PRODUCT USED FOR UNKNOWN INDICATION
     Dosage: UNK UNK, UNKNOWN
     Route: 065

REACTIONS (16)
  - ANGER [None]
  - HYPERHIDROSIS [None]
  - INFLUENZA LIKE ILLNESS [None]
  - IRRITABILITY [None]
  - SUICIDAL IDEATION [None]
  - DYSPEPSIA [None]
  - DEPRESSION [None]
  - NAUSEA [None]
  - CHILLS [None]
  - ABDOMINAL PAIN [None]
  - FATIGUE [None]
  - FLANK PAIN [None]
  - DYSPHAGIA [None]
  - BLOOD COUNT ABNORMAL [None]
  - MOOD SWINGS [None]
  - AGITATION [None]
